FAERS Safety Report 12757122 (Version 3)
Quarter: 2018Q1

REPORT INFORMATION
  Report Type: Spontaneous
  Country: JP (occurrence: JP)
  Receive Date: 20160918
  Receipt Date: 20180326
  Transmission Date: 20180508
  Serious: Yes (Hospitalization, Other)
  Sender: FDA-Public Use
  Company Number: JP-BRISTOL-MYERS SQUIBB COMPANY-BMS-2016-070259

PATIENT
  Age: 79 Year
  Sex: Female

DRUGS (1)
  1. ORENCIA [Suspect]
     Active Substance: ABATACEPT
     Indication: PRODUCT USED FOR UNKNOWN INDICATION
     Dosage: 125 MG, QWK
     Route: 058
     Dates: start: 20160706, end: 20160907

REACTIONS (5)
  - Device leakage [Unknown]
  - Tendon operation [Unknown]
  - Syringe issue [Unknown]
  - Tendon rupture [Unknown]
  - Surgery [Unknown]

NARRATIVE: CASE EVENT DATE: 20160819
